FAERS Safety Report 4389738-2 (Version None)
Quarter: 2004Q2

REPORT INFORMATION
  Report Type: 
  Country: None (occurrence: None)
  Receive Date: 20040630
  Receipt Date: 20040618
  Transmission Date: 20050107
  Serious: Yes (Death, Hospitalization)
  Sender: FDA-Public Use
  Company Number: 2004-06-1157

PATIENT
  Age: 69 Year
  Sex: Male
  Weight: 72 kg

DRUGS (7)
  1. TEMODAL [Suspect]
     Indication: ADRENAL CARCINOMA
     Dosage: 90 MG ORAL
     Route: 048
     Dates: end: 20040505
  2. SOLU-MEDROL [Concomitant]
  3. FUROSEMIDE [Concomitant]
  4. DUROGESIC (FENTANYL) [Concomitant]
  5. LAROXYL [Concomitant]
  6. RIVOTRIL [Concomitant]
  7. XATRAL (ALFUZOSIN) [Concomitant]

REACTIONS (11)
  - ANAEMIA [None]
  - ANAL FISSURE [None]
  - ASTHENIA [None]
  - HAEMORRHOIDS [None]
  - PAIN [None]
  - PALLOR [None]
  - PENIS DISORDER [None]
  - PURPURA [None]
  - PYREXIA [None]
  - RECTAL HAEMORRHAGE [None]
  - THROMBOCYTOPENIA [None]
